FAERS Safety Report 6337393-4 (Version None)
Quarter: 2009Q3

REPORT INFORMATION
  Report Type: 
  Country: None (occurrence: None)
  Receive Date: 20090901
  Receipt Date: 20090901
  Transmission Date: 20100115
  Serious: Yes (Hospitalization)
  Sender: FDA-Public Use
  Company Number: None

PATIENT
  Sex: Female
  Weight: 71 kg

DRUGS (2)
  1. CYCLOPHOSPHAMIDE [Suspect]
     Dosage: 1050 MG
  2. DOXORUBICIN HCL [Suspect]
     Dosage: 105 MG

REACTIONS (2)
  - ASTHENIA [None]
  - DEHYDRATION [None]
